FAERS Safety Report 8102621-1 (Version None)
Quarter: 2012Q1

REPORT INFORMATION
  Report Type: 
  Country: None (occurrence: None)
  Receive Date: 20120201
  Receipt Date: 20120118
  Transmission Date: 20120608
  Serious: Yes (Hospitalization, Other)
  Sender: FDA-Public Use
  Company Number: ES-RANBAXY-2011RR-51288

PATIENT
  Age: 35 Year
  Sex: Male

DRUGS (9)
  1. CETIRIZINE [Suspect]
     Indication: URTICARIA
     Dosage: UNK
     Route: 048
  2. CETIRIZINE [Suspect]
     Indication: ANGIOEDEMA
  3. PIROXICAM [Suspect]
     Dosage: 20 MG, UNK
     Route: 048
  4. ETORICOXIB [Concomitant]
     Indication: ALLERGY TEST
     Dosage: UNK
     Route: 048
  5. PIROXICAM [Suspect]
     Indication: ALLERGY TEST
     Dosage: 10 MG, UNK
     Route: 048
  6. LORATADINE [Suspect]
     Indication: ALLERGY TEST
     Dosage: 5 MG, UNK
     Route: 048
  7. LORATADINE [Suspect]
     Dosage: 10 MG, UNK
     Route: 048
  8. FEXOFENADINE [Concomitant]
     Indication: ALLERGY TEST
     Dosage: 180 MG, UNK
     Route: 048
  9. ACETAMINOPHEN [Concomitant]
     Indication: ALLERGY TEST
     Dosage: UNK
     Route: 048

REACTIONS (2)
  - URTICARIA [None]
  - ANGIOEDEMA [None]
